FAERS Safety Report 7416356-1 (Version None)
Quarter: 2011Q2

REPORT INFORMATION
  Report Type: 
  Country: None (occurrence: None)
  Receive Date: 20110414
  Receipt Date: 20110407
  Transmission Date: 20111010
  Serious: Yes (Hospitalization, Disabling, Other)
  Sender: FDA-Public Use
  Company Number: FR-PFIZER INC-2010158343

PATIENT
  Age: 66 Year
  Sex: Female

DRUGS (4)
  1. CELEBREX [Suspect]
     Indication: ARTHRALGIA
  2. CELEBREX [Suspect]
     Indication: OSTEOARTHRITIS
     Dosage: 200 MG, 1X/DAY
     Route: 048
     Dates: start: 20101102, end: 20101104
  3. CELEBREX [Suspect]
     Indication: NECK PAIN
  4. MORPHINE [Suspect]
     Indication: ABDOMINAL PAIN
     Dosage: UNK
     Dates: start: 20101101

REACTIONS (9)
  - CEREBRAL HAEMORRHAGE [None]
  - CEREBROVASCULAR ACCIDENT [None]
  - GASTRITIS [None]
  - HEMIPLEGIA [None]
  - GASTROINTESTINAL TOXICITY [None]
  - HEADACHE [None]
  - HYPERHIDROSIS [None]
  - HOT FLUSH [None]
  - DISORIENTATION [None]
